FAERS Safety Report 7017640-6 (Version None)
Quarter: 2010Q3

REPORT INFORMATION
  Report Type: 
  Country: None (occurrence: None)
  Receive Date: 20100928
  Receipt Date: 20100915
  Transmission Date: 20110219
  Serious: Yes (Other)
  Sender: FDA-Public Use
  Company Number: US-PFIZER INC-2010117516

PATIENT
  Sex: Female

DRUGS (1)
  1. LYRICA [Suspect]

REACTIONS (2)
  - FORMICATION [None]
  - PRURITUS [None]
